FAERS Safety Report 15359463 (Version 1)
Quarter: 2018Q3

REPORT INFORMATION
  Report Type: Spontaneous
  Country: FR (occurrence: FR)
  Receive Date: 20180907
  Receipt Date: 20180907
  Transmission Date: 20181010
  Serious: Yes (Other)
  Sender: FDA-Public Use
  Company Number: FR-TEVA-2018-FR-952256

PATIENT
  Age: 47 Year
  Sex: Female
  Weight: 49 kg

DRUGS (2)
  1. ANASTROZOLE. [Suspect]
     Active Substance: ANASTROZOLE
     Indication: BREAST CANCER
     Dosage: 1 MILLIGRAM DAILY;
     Route: 048
     Dates: start: 20140415
  2. ENANTONE LP [Suspect]
     Active Substance: LEUPROLIDE ACETATE
     Indication: BREAST CANCER
     Dosage: UNK
     Route: 065
     Dates: start: 20130415, end: 20170523

REACTIONS (11)
  - Pain in jaw [Not Recovered/Not Resolved]
  - Osteopenia [Not Recovered/Not Resolved]
  - Product use issue [Recovered/Resolved]
  - Pain [Not Recovered/Not Resolved]
  - Blood alkaline phosphatase increased [Not Recovered/Not Resolved]
  - Osteoporosis [Not Recovered/Not Resolved]
  - Inner ear disorder [Unknown]
  - Hypoacusis [Not Recovered/Not Resolved]
  - Vertigo [Unknown]
  - Tinnitus [Not Recovered/Not Resolved]
  - Off label use [Recovered/Resolved]

NARRATIVE: CASE EVENT DATE: 201404
